FAERS Safety Report 21663721 (Version 2)
Quarter: 2023Q1

REPORT INFORMATION
  Report Type: Spontaneous
  Country: US (occurrence: None)
  Receive Date: 20221130
  Receipt Date: 20230109
  Transmission Date: 20230418
  Serious: No
  Sender: FDA-Public Use
  Company Number: 2022A368431

PATIENT
  Age: 24138 Day
  Sex: Male
  Weight: 103.4 kg

DRUGS (1)
  1. BYDUREON BCISE [Suspect]
     Active Substance: EXENATIDE
     Indication: Type 2 diabetes mellitus
     Route: 058
     Dates: start: 2020

REACTIONS (4)
  - Injection site haemorrhage [Unknown]
  - Device malfunction [Unknown]
  - Device leakage [Unknown]
  - Device use issue [Unknown]

NARRATIVE: CASE EVENT DATE: 20221107
